FAERS Safety Report 15593296 (Version 1)
Quarter: 2018Q4

REPORT INFORMATION
  Report Type: Spontaneous
  Country: US (occurrence: US)
  Receive Date: 20181107
  Receipt Date: 20181107
  Transmission Date: 20190205
  Serious: Yes (Life-Threatening, Hospitalization)
  Sender: FDA-Public Use
  Company Number: None

PATIENT
  Age: 54 Year
  Sex: Male

DRUGS (1)
  1. DAPAGLIFLOZIN. [Suspect]
     Active Substance: DAPAGLIFLOZIN

REACTIONS (3)
  - Dyspnoea [None]
  - Euglycaemic diabetic ketoacidosis [None]
  - Therapy change [None]

NARRATIVE: CASE EVENT DATE: 20180807
